FAERS Safety Report 21383512 (Version 4)
Quarter: 2022Q4

REPORT INFORMATION
  Report Type: Spontaneous
  Country: DE (occurrence: DE)
  Receive Date: 20220927
  Receipt Date: 20221031
  Transmission Date: 20230113
  Serious: Yes (Hospitalization, Other)
  Sender: FDA-Public Use
  Company Number: DE-ANIPHARMA-2022-DE-000135

PATIENT
  Age: 76 Year
  Sex: Male

DRUGS (13)
  1. CANDESARTAN CILEXETIL [Suspect]
     Active Substance: CANDESARTAN CILEXETIL
     Indication: Product used for unknown indication
     Dosage: 16 MG BID
     Route: 048
  2. NIFEDIPINE [Concomitant]
     Active Substance: NIFEDIPINE
     Dosage: 80 MG DAILY
     Route: 048
  3. PANTOPRAZOLE SODIUM [Concomitant]
     Active Substance: PANTOPRAZOLE SODIUM
     Dosage: 20 MG DAILY
     Route: 048
  4. ASPIRIN [Concomitant]
     Active Substance: ASPIRIN
     Dosage: 100 MG DAILY
     Route: 048
  5. MEMANTINE [Concomitant]
     Active Substance: MEMANTINE
     Dosage: 20 MG DAILY
     Route: 048
  6. METOPROLOL [Suspect]
     Active Substance: METOPROLOL
     Dosage: 47.5 MG BID
     Route: 048
  7. RAMIPRIL [Suspect]
     Active Substance: RAMIPRIL
     Dosage: 5 MG DAILY
     Route: 048
  8. METFORMIN [Suspect]
     Active Substance: METFORMIN HYDROCHLORIDE
     Dosage: 850 MG Q12H
     Route: 048
  9. SITAGLIPTIN [Suspect]
     Active Substance: SITAGLIPTIN
     Dosage: 50 MG Q12H
     Route: 048
  10. IBUPROFEN [Suspect]
     Active Substance: IBUPROFEN
     Dosage: 600 MG, REQUIREMENT
     Route: 048
  11. SIMVASTATIN [Concomitant]
     Active Substance: SIMVASTATIN
     Dosage: 40 MG DAILY
     Route: 048
  12. LEVOTHYROXINE SODIUM [Concomitant]
     Active Substance: LEVOTHYROXINE SODIUM
     Dosage: 25 ?G, 1.5-0-0-0
     Route: 048
  13. POTASSIUM CITRATE [Concomitant]
     Active Substance: POTASSIUM CITRATE
     Dosage: 2157.3 MG
     Route: 048

REACTIONS (8)
  - Dysuria [Unknown]
  - Acute kidney injury [Unknown]
  - Eye swelling [Unknown]
  - Condition aggravated [Unknown]
  - Atrioventricular block [Unknown]
  - Oedema peripheral [Unknown]
  - Cardiac failure [Unknown]
  - Pain [Unknown]
